FAERS Safety Report 9886000 (Version 2)
Quarter: 2014Q1

REPORT INFORMATION
  Report Type: Report from Study
  Country: JP (occurrence: JP)
  Receive Date: 20140210
  Receipt Date: 20140311
  Transmission Date: 20141002
  Serious: Yes (Disabling)
  Sender: FDA-Public Use
  Company Number: JP-GLAXOSMITHKLINE-B0967306A

PATIENT
  Age: 63 Year
  Sex: Male
  Weight: 79 kg

DRUGS (4)
  1. VOTRIENT 200MG [Suspect]
     Indication: LIPOSARCOMA
     Dosage: 800MG PER DAY
     Route: 048
     Dates: start: 20130422, end: 20130426
  2. VOTRIENT 200MG [Suspect]
     Indication: LIPOSARCOMA
     Dosage: 600MG PER DAY
     Route: 048
     Dates: start: 20130430, end: 20130512
  3. VOTRIENT 200MG [Suspect]
     Indication: LIPOSARCOMA
     Dosage: 400MG PER DAY
     Route: 048
     Dates: start: 20130529, end: 20130624
  4. NORVASC [Concomitant]
     Indication: HYPERTENSION
     Route: 048

REACTIONS (6)
  - Proteinuria [Recovering/Resolving]
  - Diarrhoea [Recovered/Resolved]
  - Diarrhoea [Recovered/Resolved]
  - Diarrhoea [Not Recovered/Not Resolved]
  - Diarrhoea [Recovered/Resolved]
  - Blood creatinine increased [Recovering/Resolving]
